FAERS Safety Report 7964835-0 (Version None)
Quarter: 2011Q4

REPORT INFORMATION
  Report Type: 
  Country: None (occurrence: None)
  Receive Date: 20111208
  Receipt Date: 20111206
  Transmission Date: 20120403
  Serious: Yes (Death, Hospitalization, Other)
  Sender: FDA-Public Use
  Company Number: PHHY2011TW65710

PATIENT
  Sex: Male
  Weight: 140 kg

DRUGS (7)
  1. AMPOLIN [Concomitant]
     Dosage: 2000 MG, QD
     Dates: start: 20110718
  2. DAUNORUBICIN HCL [Concomitant]
  3. IDARUBICIN HCL [Concomitant]
  4. TASIGNA [Suspect]
     Indication: CHRONIC MYELOID LEUKAEMIA
     Dosage: 800 MG, DAILY
     Route: 048
     Dates: start: 20110627
  5. SULBACTAM [Concomitant]
     Dosage: 1000 MG, QD
     Dates: start: 20110718
  6. FLUDARABINE PHOSPHATE [Concomitant]
  7. CYTARABINE [Concomitant]

REACTIONS (11)
  - HAEMORRHAGE [None]
  - NEUTROPENIA [None]
  - SEPTIC SHOCK [None]
  - FASCIITIS [None]
  - PLATELET COUNT DECREASED [None]
  - ACUTE MYELOID LEUKAEMIA [None]
  - ANAL ABSCESS [None]
  - RED BLOOD CELL COUNT DECREASED [None]
  - HAEMOGLOBIN DECREASED [None]
  - HAEMATOCRIT DECREASED [None]
  - PYREXIA [None]
